FAERS Safety Report 5718680-7 (Version None)
Quarter: 2008Q2

REPORT INFORMATION
  Report Type: 
  Country: None (occurrence: None)
  Receive Date: 20080425
  Receipt Date: 20080415
  Transmission Date: 20081010
  Serious: Yes (Other)
  Sender: FDA-Public Use
  Company Number: US-PFIZER INC-2008033307

PATIENT
  Sex: Male
  Weight: 90.7 kg

DRUGS (2)
  1. LIPITOR [Suspect]
     Indication: BLOOD CHOLESTEROL INCREASED
  2. VITAMIN CAP [Concomitant]

REACTIONS (8)
  - BLOOD CALCIUM DECREASED [None]
  - BURNING SENSATION [None]
  - HYPOAESTHESIA [None]
  - MOBILITY DECREASED [None]
  - MUSCLE DISORDER [None]
  - OEDEMA PERIPHERAL [None]
  - PARALYSIS [None]
  - UNEVALUABLE EVENT [None]
